FAERS Safety Report 10760763 (Version 1)
Quarter: 2015Q1

REPORT INFORMATION
  Report Type: Spontaneous
  Country: US (occurrence: None)
  Receive Date: 20150202
  Receipt Date: 20150202
  Transmission Date: 20150721
  Serious: Yes (Hospitalization)
  Sender: FDA-Public Use
  Company Number: IPC201501-000041

PATIENT
  Age: 49 Year
  Sex: Male

DRUGS (2)
  1. METFORMIN HYDROCHLORIDE (METFORMIN HYDROCHLORIDE) (METFORMIN HYDROCHLORIDE) [Suspect]
     Active Substance: METFORMIN HYDROCHLORIDE
     Indication: DIABETES MELLITUS
  2. HALOPERIDOL (HALOPERIDOL) (HALOPERIDOL) [Concomitant]
     Active Substance: HALOPERIDOL

REACTIONS (8)
  - Anuria [None]
  - Lethargy [None]
  - Speech disorder [None]
  - Accidental overdose [None]
  - Unresponsive to stimuli [None]
  - Hypoglycaemia [None]
  - Haemodynamic instability [None]
  - Toxicity to various agents [None]
